FAERS Safety Report 20605450 (Version 1)
Quarter: 2022Q1

REPORT INFORMATION
  Report Type: Spontaneous
  Country: AU (occurrence: AU)
  Receive Date: 20220317
  Receipt Date: 20220317
  Transmission Date: 20220424
  Serious: Yes (Hospitalization, Other)
  Sender: FDA-Public Use
  Company Number: AU-MLMSERVICE-20220301-3394667-1

PATIENT
  Age: 43 Year
  Sex: Female

DRUGS (3)
  1. MYCOPHENOLATE MOFETIL [Suspect]
     Active Substance: MYCOPHENOLATE MOFETIL
     Indication: Immunosuppressant drug therapy
  2. PREDNISOLONE [Suspect]
     Active Substance: PREDNISOLONE
     Indication: Immunosuppressant drug therapy
  3. CYCLOSPORINE [Suspect]
     Active Substance: CYCLOSPORINE
     Indication: Immunosuppressant drug therapy

REACTIONS (8)
  - Bone lesion [Unknown]
  - Osteonecrosis [Unknown]
  - Hypertension [Unknown]
  - Osteoporosis [Unknown]
  - Epstein-Barr virus infection [Unknown]
  - Renal impairment [Unknown]
  - Smooth muscle cell neoplasm [Unknown]
  - Cytomegalovirus colitis [Recovered/Resolved]
